FAERS Safety Report 6698579-2 (Version None)
Quarter: 2010Q2

REPORT INFORMATION
  Report Type: 
  Country: None (occurrence: None)
  Receive Date: 20100426
  Receipt Date: 20100426
  Transmission Date: 20101027
  Serious: Yes (Other)
  Sender: FDA-Public Use
  Company Number: None

PATIENT
  Sex: Female
  Weight: 70.7611 kg

DRUGS (1)
  1. SIMVASTATIN 20MG DON KNOW [Suspect]
     Indication: BLOOD CHOLESTEROL INCREASED
     Dates: start: 20100407, end: 20100409

REACTIONS (4)
  - MIDDLE INSOMNIA [None]
  - MOVEMENT DISORDER [None]
  - MUSCLE SPASMS [None]
  - PAIN IN EXTREMITY [None]
